FAERS Safety Report 5013500-0 (Version None)
Quarter: 2006Q2

REPORT INFORMATION
  Report Type: 
  Country: None (occurrence: None)
  Receive Date: 20060525
  Receipt Date: 20060525
  Transmission Date: 20061013
  Serious: Yes (Disabling)
  Sender: FDA-Public Use
  Company Number: None

PATIENT
  Age: 30 Year
  Sex: Male
  Weight: 136.0791 kg

DRUGS (1)
  1. DAUNORUBICIN (50MG/M2) [Suspect]
     Indication: ACUTE PROMYELOCYTIC LEUKAEMIA
     Dosage: 110 MG (X3-4 DAYS) APPRX Q8 WEEKS IV
     Route: 042
     Dates: start: 20040106, end: 20040901

REACTIONS (2)
  - DYSPNOEA [None]
  - ORTHOPNOEA [None]
